FAERS Safety Report 16818890 (Version 7)
Quarter: 2021Q3

REPORT INFORMATION
  Report Type: Spontaneous
  Country: GB (occurrence: GB)
  Receive Date: 20190917
  Receipt Date: 20210906
  Transmission Date: 20211014
  Serious: Yes (Hospitalization, Other)
  Sender: FDA-Public Use
  Company Number: PHHY2019GB212250

PATIENT
  Age: 7 Year
  Sex: Male
  Weight: 33.8 kg

DRUGS (2)
  1. ILARIS [Suspect]
     Active Substance: CANAKINUMAB
     Indication: STILL^S DISEASE
     Dosage: 4 MG/KG, 8 WEEKLY
     Route: 058
     Dates: start: 20151201
  2. ILARIS [Suspect]
     Active Substance: CANAKINUMAB
     Indication: HAEMOPHAGOCYTIC LYMPHOHISTIOCYTOSIS
     Dosage: 100 MG, EVERY 8 WEEKS
     Route: 058
     Dates: start: 201512

REACTIONS (8)
  - Colitis [Recovering/Resolving]
  - Constipation [Unknown]
  - Diarrhoea haemorrhagic [Unknown]
  - Hepatitis A [Recovered/Resolved]
  - Transaminases increased [Unknown]
  - Product use in unapproved indication [Unknown]
  - Rectal haemorrhage [Unknown]
  - Faecal calprotectin increased [Unknown]

NARRATIVE: CASE EVENT DATE: 20190429
